FAERS Safety Report 5798872-1 (Version None)
Quarter: 2008Q3

REPORT INFORMATION
  Report Type: 
  Country: None (occurrence: None)
  Receive Date: 20080702
  Receipt Date: 20080626
  Transmission Date: 20090109
  Serious: Yes (Hospitalization)
  Sender: FDA-Public Use
  Company Number: IT-MERCK-0806ITA00029

PATIENT
  Age: 29 Year
  Sex: Female

DRUGS (7)
  1. PRIMAXIN [Suspect]
     Indication: PERITONEAL HAEMORRHAGE
     Route: 041
     Dates: start: 20080611, end: 20080612
  2. TAVANIC [Suspect]
     Indication: PERITONEAL HAEMORRHAGE
     Route: 041
     Dates: start: 20080611, end: 20080612
  3. TAVANIC [Suspect]
     Route: 048
     Dates: start: 20080612, end: 20080613
  4. BISOLVON [Concomitant]
     Route: 042
  5. SURFACTAL [Concomitant]
     Route: 042
  6. PANTOPRAZOLE [Concomitant]
     Route: 042
  7. BEMIPARIN SODIUM [Concomitant]
     Route: 061

REACTIONS (2)
  - FLUSHING [None]
  - PRURITUS GENERALISED [None]
